FAERS Safety Report 9379766 (Version 1)
Quarter: 2013Q3

REPORT INFORMATION
  Report Type: Spontaneous
  Country: US (occurrence: US)
  Receive Date: 20130702
  Receipt Date: 20130702
  Transmission Date: 20140515
  Serious: Yes (Other)
  Sender: FDA-Public Use
  Company Number: PHHY2013US066502

PATIENT
  Sex: Male

DRUGS (3)
  1. VENLAFAXINE [Suspect]
     Indication: MAJOR DEPRESSION
     Dosage: 300 MG, PER DAY
  2. VENLAFAXINE [Suspect]
     Dosage: 37.5 MG, PER DAY
  3. LAMOTRIGINE [Concomitant]

REACTIONS (9)
  - Feeling abnormal [Recovered/Resolved]
  - Affect lability [Recovered/Resolved]
  - Hyperacusis [Recovered/Resolved]
  - Anhedonia [Recovered/Resolved]
  - Tinnitus [Recovered/Resolved]
  - Headache [Recovered/Resolved]
  - Nausea [Recovered/Resolved]
  - Anxiety [Recovered/Resolved]
  - Drug withdrawal syndrome [Unknown]
